FAERS Safety Report 8184408-7 (Version None)
Quarter: 2012Q1

REPORT INFORMATION
  Report Type: 
  Country: None (occurrence: None)
  Receive Date: 20120208
  Receipt Date: 20111031
  Transmission Date: 20120608
  Serious: No
  Sender: FDA-Public Use
  Company Number: 2011PP000068

PATIENT
  Sex: Female

DRUGS (1)
  1. NATROBA [Suspect]
     Indication: LICE INFESTATION
     Dosage: TOP
     Route: 061

REACTIONS (1)
  - DRUG INEFFECTIVE [None]
